FAERS Safety Report 21129734 (Version 1)
Quarter: 2022Q3

REPORT INFORMATION
  Report Type: Spontaneous
  Country: US (occurrence: US)
  Receive Date: 20220726
  Receipt Date: 20220726
  Transmission Date: 20221027
  Serious: No
  Sender: FDA-Public Use
  Company Number: US-GSK-US2022109245

PATIENT
  Sex: Female

DRUGS (1)
  1. LAMOTRIGINE [Suspect]
     Active Substance: LAMOTRIGINE
     Indication: Seizure
     Dosage: 150 MG, QD

REACTIONS (5)
  - Headache [Unknown]
  - Rash [Unknown]
  - Abdominal pain upper [Unknown]
  - Nausea [Unknown]
  - Therapeutic response changed [Unknown]
